FAERS Safety Report 11060131 (Version 2)
Quarter: 2015Q2

REPORT INFORMATION
  Report Type: Spontaneous
  Country: JP (occurrence: JP)
  Receive Date: 20150423
  Receipt Date: 20150617
  Transmission Date: 20150821
  Serious: Yes (Death)
  Sender: FDA-Public Use
  Company Number: JP-TEVA-556302ISR

PATIENT
  Age: 78 Year
  Sex: Male
  Weight: 45 kg

DRUGS (16)
  1. DUROTEP [Concomitant]
     Active Substance: FENTANYL
     Indication: CANCER PAIN
     Dosage: 2.1 MILLIGRAM DAILY;
     Route: 062
     Dates: start: 20150314, end: 20150315
  2. DUROTEP [Concomitant]
     Active Substance: FENTANYL
     Dosage: 6.3 MILLIGRAM DAILY;
     Route: 062
     Dates: start: 20150330, end: 20150410
  3. JUZENTAIHOTO [Concomitant]
     Indication: MALAISE
     Dosage: 7.5 MILLIGRAM DAILY;
     Route: 048
  4. URIEF [Concomitant]
     Active Substance: SILODOSIN
     Indication: HYPERTONIC BLADDER
     Dosage: 8 MILLIGRAM DAILY;
     Route: 048
  5. SENNOSIDE [Concomitant]
     Active Substance: SENNOSIDES
     Indication: CONSTIPATION PROPHYLAXIS
     Dosage: 24 MILLIGRAM DAILY;
     Route: 048
  6. TEPRENONE [Concomitant]
     Active Substance: TEPRENONE
     Indication: GASTRITIS PROPHYLAXIS
     Dosage: 150 MILLIGRAM DAILY;
     Route: 048
  7. ZOLPIDEM TARTRATE. [Concomitant]
     Active Substance: ZOLPIDEM TARTRATE
     Indication: INSOMNIA
     Dosage: 5 MILLIGRAM DAILY;
     Route: 048
  8. DUROTEP [Concomitant]
     Active Substance: FENTANYL
     Dosage: 4.2 MILLIGRAM DAILY;
     Route: 062
     Dates: start: 20150316, end: 20150329
  9. CELECOX [Concomitant]
     Active Substance: CELECOXIB
     Indication: CANCER PAIN
     Dosage: 200 MILLIGRAM DAILY;
     Route: 048
  10. CELECOX [Concomitant]
     Active Substance: CELECOXIB
     Dosage: 100 MILLIGRAM DAILY;
     Route: 048
  11. CISPLATIN. [Concomitant]
     Active Substance: CISPLATIN
     Indication: CHEMOTHERAPY
     Dosage: 20 MILLIGRAM DAILY;
     Route: 065
  12. GEMCITABINE [Concomitant]
     Active Substance: GEMCITABINE\GEMCITABINE HYDROCHLORIDE
     Indication: CHEMOTHERAPY
     Dosage: 200 MILLIGRAM DAILY;
     Route: 065
  13. E-FEN BUCCAL [Suspect]
     Active Substance: FENTANYL CITRATE
     Indication: BREAKTHROUGH PAIN
     Dosage: DAILY DOSE: 0 - 100 MICROGRAM
     Route: 002
     Dates: start: 20150314, end: 20150404
  14. OXINORM [Concomitant]
     Active Substance: OXYCODONE HYDROCHLORIDE
     Indication: BREAKTHROUGH PAIN
     Route: 048
     Dates: start: 20150313
  15. PRAVASTATIN SODIUM. [Concomitant]
     Active Substance: PRAVASTATIN SODIUM
     Indication: HYPERLIPIDAEMIA
     Dosage: 10 MILLIGRAM DAILY;
     Route: 048
  16. KEISHIBUKURYOUGAN [Concomitant]
     Indication: CONSTIPATION PROPHYLAXIS
     Dosage: 6 DOSAGE FORMS DAILY;
     Route: 048

REACTIONS (1)
  - Pancreatic carcinoma [Fatal]

NARRATIVE: CASE EVENT DATE: 20150410
